FAERS Safety Report 4380175-3 (Version None)
Quarter: 2004Q2

REPORT INFORMATION
  Report Type: 
  Country: None (occurrence: None)
  Receive Date: 20040614
  Receipt Date: 20040506
  Transmission Date: 20050107
  Serious: No
  Sender: FDA-Public Use
  Company Number: M04-341-142

PATIENT
  Age: 76 Year
  Sex: Male
  Weight: 74 kg

DRUGS (7)
  1. VELCADE [Suspect]
     Indication: MULTIPLE MYELOMA
     Dosage: 2.5 MG: INTRAVENOUS BOLUS
     Route: 040
     Dates: start: 20040101
  2. ALLOPURINOL [Concomitant]
  3. ATENOLOL [Concomitant]
  4. MULTIVITAMIN [Concomitant]
  5. DEXAMETHASONE [Concomitant]
  6. VITAMIN B COMPLEX CAP [Concomitant]
  7. VITAMIN C (ASCORBIC ACID) [Concomitant]

REACTIONS (2)
  - DECREASED APPETITE [None]
  - WEIGHT DECREASED [None]
